FAERS Safety Report 22335273 (Version 1)
Quarter: 2023Q2

REPORT INFORMATION
  Report Type: Spontaneous
  Country: US (occurrence: None)
  Receive Date: 20230518
  Receipt Date: 20230518
  Transmission Date: 20230722
  Serious: No
  Sender: FDA-Public Use
  Company Number: US-ROCHE-3291708

PATIENT
  Age: 57 Year
  Sex: Male
  Weight: 104.42 kg

DRUGS (16)
  1. ACTEMRA [Suspect]
     Active Substance: TOCILIZUMAB
     Indication: Rheumatoid arthritis
     Dosage: STRENGTH: 162MG/0.9ML
     Route: 058
     Dates: start: 20230210
  2. ACTEMRA [Suspect]
     Active Substance: TOCILIZUMAB
  3. ACTEMRA [Suspect]
     Active Substance: TOCILIZUMAB
  4. NOVOLOG [Concomitant]
     Active Substance: INSULIN ASPART
     Indication: Diabetes mellitus
     Dosage: 2 SHOTS DAILY IN ARM OF 12-14 UNITS ;ONGOING: YES
     Route: 058
     Dates: start: 2022
  5. LEVEMIR [Concomitant]
     Active Substance: INSULIN DETEMIR
     Indication: Diabetes mellitus
     Dosage: 46 UNITS DAILY ;ONGOING: YES
     Route: 058
     Dates: start: 2022
  6. AMLODIPINE [Concomitant]
     Active Substance: AMLODIPINE BESYLATE
     Indication: Hypertension
     Route: 048
  7. INDERAL [Concomitant]
     Active Substance: PROPRANOLOL HYDROCHLORIDE
     Indication: Hypertension
     Route: 048
  8. LISINOPRIL [Concomitant]
     Active Substance: LISINOPRIL
  9. PREDNISONE [Concomitant]
     Active Substance: PREDNISONE
  10. ATORVASTATIN [Concomitant]
     Active Substance: ATORVASTATIN
  11. TRULICITY [Concomitant]
     Active Substance: DULAGLUTIDE
  12. BAYER ASPIRIN [Concomitant]
     Active Substance: ASPIRIN
  13. FOLIC ACID [Concomitant]
     Active Substance: FOLIC ACID
  14. HYDROCHLOROTHIAZIDE [Concomitant]
     Active Substance: HYDROCHLOROTHIAZIDE
  15. GLIMEPIRIDE [Concomitant]
     Active Substance: GLIMEPIRIDE
  16. METFORMIN [Concomitant]
     Active Substance: METFORMIN HYDROCHLORIDE

REACTIONS (1)
  - Fatigue [Not Recovered/Not Resolved]

NARRATIVE: CASE EVENT DATE: 20230213
